FAERS Safety Report 7796062-4 (Version None)
Quarter: 2011Q4

REPORT INFORMATION
  Report Type: 
  Country: None (occurrence: None)
  Receive Date: 20111004
  Receipt Date: 20110927
  Transmission Date: 20120403
  Serious: Yes (Other)
  Sender: FDA-Public Use
  Company Number: US-TYCO HEALTHCARE/MALLINCKRODT-T201101907

PATIENT
  Age: 7 Year
  Sex: Male

DRUGS (1)
  1. METHYLIN [Suspect]
     Indication: PRODUCT USED FOR UNKNOWN INDICATION
     Dosage: UNK

REACTIONS (2)
  - RENAL CELL CARCINOMA [None]
  - ANAPHYLACTIC REACTION [None]
